FAERS Safety Report 6250098-3 (Version None)
Quarter: 2009Q2

REPORT INFORMATION
  Report Type: 
  Country: None (occurrence: None)
  Receive Date: 20090626
  Receipt Date: 20090618
  Transmission Date: 20091009
  Serious: Yes (Disabling, Other)
  Sender: FDA-Public Use
  Company Number: 2009US002485

PATIENT
  Age: 35 Year
  Sex: Male

DRUGS (5)
  1. PROGRAF [Suspect]
     Indication: PANCREATIC DISORDER
  2. PROGRAF [Suspect]
     Indication: RENAL DISORDER
  3. ANTI-THYMOCYTE GLOBULIN RABBIT NOS [Concomitant]
  4. METHYLPREDNISOLONE [Concomitant]
  5. MYCOPHENOLATE MOFETIL [Concomitant]

REACTIONS (3)
  - MYELITIS TRANSVERSE [None]
  - PNEUMONIA [None]
  - URINARY TRACT INFECTION BACTERIAL [None]
